FAERS Safety Report 12463257 (Version 5)
Quarter: 2016Q3

REPORT INFORMATION
  Report Type: Report from Study
  Country: US (occurrence: US)
  Receive Date: 20160614
  Receipt Date: 20160712
  Transmission Date: 20161109
  Serious: Yes (Hospitalization, Other)
  Sender: FDA-Public Use
  Company Number: US-GILEAD-2016-0217403

PATIENT
  Age: 34 Year
  Sex: Male

DRUGS (10)
  1. AMBRISENTAN [Suspect]
     Active Substance: AMBRISENTAN
     Indication: PARADOXICAL EMBOLISM
     Dosage: 5 MG, QD
     Route: 048
     Dates: start: 201606
  2. COUMADINE [Concomitant]
     Active Substance: WARFARIN SODIUM
  3. LOVENOX [Concomitant]
     Active Substance: ENOXAPARIN SODIUM
  4. REVATIO [Concomitant]
     Active Substance: SILDENAFIL CITRATE
  5. AMBRISENTAN [Suspect]
     Active Substance: AMBRISENTAN
     Indication: DILATATION VENTRICULAR
  6. PRAVASTATIN. [Concomitant]
     Active Substance: PRAVASTATIN
  7. AMBRISENTAN [Suspect]
     Active Substance: AMBRISENTAN
     Indication: PULMONARY HYPERTENSION
     Dosage: 10 MG, QD
     Route: 048
     Dates: start: 20140523
  8. TYVASO [Concomitant]
     Active Substance: TREPROSTINIL
  9. AMBRISENTAN [Suspect]
     Active Substance: AMBRISENTAN
     Indication: ATRIAL SEPTAL DEFECT
     Dosage: 5 MG, UNK
     Route: 048
     Dates: start: 20140822, end: 201511
  10. LASIX [Concomitant]
     Active Substance: FUROSEMIDE

REACTIONS (9)
  - Heart disease congenital [Unknown]
  - Drug dose omission [Recovered/Resolved]
  - Atrial septal defect [Unknown]
  - Pulmonary hypertension [Unknown]
  - Asthenia [Recovered/Resolved]
  - Embolic stroke [Unknown]
  - Pulmonary thrombosis [Not Recovered/Not Resolved]
  - Sleep apnoea syndrome [Unknown]
  - Dyspnoea [Recovered/Resolved]

NARRATIVE: CASE EVENT DATE: 201511
